FAERS Safety Report 4890660-3 (Version None)
Quarter: 2006Q1

REPORT INFORMATION
  Report Type: 
  Country: None (occurrence: None)
  Receive Date: 20060123
  Receipt Date: 20060113
  Transmission Date: 20060701
  Serious: Yes (Other)
  Sender: FDA-Public Use
  Company Number: 2006008067

PATIENT
  Age: 13 Month
  Sex: Female
  Weight: 9.9791 kg

DRUGS (1)
  1. CHILDREN'S PEDIACARE NIGHTREST COUGH AND COLD (PSEUDOEPHEDRINE, DEXTRO [Suspect]
     Indication: NASOPHARYNGITIS
     Dosage: 1/2 TEASPOON 3 TIMES A DAY, ORAL
     Route: 048
     Dates: start: 20060110, end: 20060111

REACTIONS (1)
  - HYPERSENSITIVITY [None]
